FAERS Safety Report 10470099 (Version 5)
Quarter: 2015Q3

REPORT INFORMATION
  Report Type: Spontaneous
  Country: US (occurrence: US)
  Receive Date: 20140923
  Receipt Date: 20150923
  Transmission Date: 20151125
  Serious: Yes (Death, Hospitalization, Other)
  Sender: FDA-Public Use
  Company Number: US-009507513-1409USA010710

PATIENT
  Sex: Female
  Weight: 55.78 kg

DRUGS (1)
  1. JANUVIA [Suspect]
     Active Substance: SITAGLIPTIN PHOSPHATE
     Indication: TYPE 2 DIABETES MELLITUS
     Dosage: 50 MG, QD
     Route: 048
     Dates: start: 20070629, end: 20100214

REACTIONS (29)
  - Renal mass [Unknown]
  - Vascular calcification [Unknown]
  - Faeces pale [Unknown]
  - Coronary artery disease [Unknown]
  - Varicose vein [Unknown]
  - Bladder prolapse [Unknown]
  - Coronary artery bypass [Unknown]
  - Oedema [Unknown]
  - Vertigo [Unknown]
  - Diabetes mellitus [Unknown]
  - Cholelithiasis [Unknown]
  - Upper gastrointestinal haemorrhage [Unknown]
  - Glaucoma [Unknown]
  - Anxiety [Unknown]
  - Hiatus hernia [Unknown]
  - Cholelithiasis [Unknown]
  - Central obesity [Unknown]
  - Uterine prolapse [Unknown]
  - Dysphagia [Unknown]
  - Ductal adenocarcinoma of pancreas [Fatal]
  - Depression [Unknown]
  - Uterine fibrosis [Unknown]
  - Choluria [Unknown]
  - Adrenal mass [Unknown]
  - Pelvic pain [Unknown]
  - Diverticulum [Unknown]
  - Osteoporosis [Unknown]
  - Abdominal distension [Unknown]
  - Device occlusion [Unknown]

NARRATIVE: CASE EVENT DATE: 2009
